FAERS Safety Report 4363968-8 (Version None)
Quarter: 2004Q2

REPORT INFORMATION
  Report Type: 
  Country: None (occurrence: None)
  Receive Date: 20040517
  Receipt Date: 20040503
  Transmission Date: 20050107
  Serious: Yes (Death, Life-Threatening, Hospitalization)
  Sender: FDA-Public Use
  Company Number: THYM-10136

PATIENT

DRUGS (4)
  1. ATG [Suspect]
     Indication: WEGENER'S GRANULOMATOSIS
  2. METHYLPEDNISOLONE [Concomitant]
  3. GLUCOCORTICOIDS [Concomitant]
  4. AZATHIOPRINE [Concomitant]

REACTIONS (7)
  - BACTERIAL INFECTION [None]
  - PNEUMONIA [None]
  - PULMONARY CAVITATION [None]
  - RESPIRATORY FAILURE [None]
  - SEPSIS [None]
  - STAPHYLOCOCCAL INFECTION [None]
  - VASCULITIC RASH [None]
